FAERS Safety Report 4727669-6 (Version None)
Quarter: 2005Q3

REPORT INFORMATION
  Report Type: 
  Country: None (occurrence: None)
  Receive Date: 20050725
  Receipt Date: 20050601
  Transmission Date: 20060218
  Serious: No
  Sender: FDA-Public Use
  Company Number: CART-10404

PATIENT
  Age: 36 Year
  Sex: Female

DRUGS (1)
  1. CARTICEL [Suspect]
     Indication: ARTHROPATHY
     Dosage: 1 NA ONCE IS
     Dates: start: 19980518, end: 19980518

REACTIONS (8)
  - ADHESION [None]
  - CHONDROPATHY [None]
  - FAILURE OF IMPLANT [None]
  - GRAFT DELAMINATION [None]
  - HYPERTROPHY [None]
  - POST PROCEDURAL COMPLICATION [None]
  - SURGICAL PROCEDURE REPEATED [None]
  - THERAPY NON-RESPONDER [None]
